FAERS Safety Report 12279347 (Version 1)
Quarter: 2016Q2

REPORT INFORMATION
  Report Type: Spontaneous
  Country: FR (occurrence: FR)
  Receive Date: 20160418
  Receipt Date: 20160418
  Transmission Date: 20160815
  Serious: Yes (Other)
  Sender: FDA-Public Use
  Company Number: ALCN2016FR002503

PATIENT
  Age: 7 Year
  Sex: Female
  Weight: 21 kg

DRUGS (1)
  1. CYCLOPENTOLATE HCL [Suspect]
     Active Substance: CYCLOPENTOLATE HYDROCHLORIDE
     Indication: OPHTHALMOLOGICAL EXAMINATION
     Dosage: 2 GTT, ONCE4SDO
     Route: 047
     Dates: start: 20150422, end: 20150422

REACTIONS (3)
  - Pyelocaliectasis [Recovered/Resolved]
  - Vomiting [Recovered/Resolved]
  - Mydriasis [Recovered/Resolved]

NARRATIVE: CASE EVENT DATE: 20150422
